FAERS Safety Report 7902725-X (Version None)
Quarter: 2011Q4

REPORT INFORMATION
  Report Type: 
  Country: None (occurrence: None)
  Receive Date: 20111109
  Receipt Date: 20111028
  Transmission Date: 20120403
  Serious: Yes (Other)
  Sender: FDA-Public Use
  Company Number: DE-PAR PHARMACEUTICAL, INC-2011SCPR003401

PATIENT

DRUGS (5)
  1. TIAPRIDE NEURAX [Suspect]
     Indication: PRODUCT USED FOR UNKNOWN INDICATION
     Dosage: 200 MG, DOSING SCHEME : 1-1-1
     Route: 048
     Dates: start: 19990101
  2. ABILIFY [Suspect]
     Indication: PRODUCT USED FOR UNKNOWN INDICATION
     Dosage: DOSING SCHEME 5MG-0-15MG
     Route: 048
     Dates: start: 20080101
  3. OMEPRAZOLE [Suspect]
     Indication: PRODUCT USED FOR UNKNOWN INDICATION
     Dosage: 20 MG, DOSING SCHEME: 1-0-0
     Route: 048
     Dates: start: 20080101
  4. CAPTOPRIL [Suspect]
     Indication: PRODUCT USED FOR UNKNOWN INDICATION
     Dosage: 25 MG, DOSING SCHEME AS 0.5-0-0
     Route: 048
     Dates: start: 20030101
  5. FLUVOXAMINE MALEATE [Suspect]
     Indication: PRODUCT USED FOR UNKNOWN INDICATION
     Dosage: 100 MG, DOSING SCHEME: 1.5-0-0
     Route: 048
     Dates: start: 20000101

REACTIONS (1)
  - KERATOCONUS [None]
